FAERS Safety Report 9917076 (Version 7)
Quarter: 2015Q4

REPORT INFORMATION
  Report Type: Spontaneous
  Country: US (occurrence: US)
  Receive Date: 20140221
  Receipt Date: 20151104
  Transmission Date: 20160305
  Serious: Yes (Other)
  Sender: FDA-Public Use
  Company Number: US-EXELIXIS-CABO-13002742

PATIENT
  Age: 73 Year
  Sex: Male
  Weight: 76.19 kg

DRUGS (21)
  1. COMETRIQ [Suspect]
     Active Substance: CABOZANTINIB S-MALATE
     Dosage: 60 MG, QD
     Route: 048
     Dates: start: 20130329, end: 2013
  2. COMETRIQ [Suspect]
     Active Substance: CABOZANTINIB S-MALATE
     Dosage: 60 MG, QOD
     Route: 048
     Dates: start: 20150825
  3. LEVOTHYROXINE. [Concomitant]
     Active Substance: LEVOTHYROXINE
  4. AMLODIPINE [Concomitant]
     Active Substance: AMLODIPINE BESYLATE
  5. ATORVASTATIN [Concomitant]
     Active Substance: ATORVASTATIN
  6. CLONIDINE. [Concomitant]
     Active Substance: CLONIDINE
  7. FAMOTIDINE. [Concomitant]
     Active Substance: FAMOTIDINE
  8. VITAMIN D3 [Concomitant]
     Active Substance: CHOLECALCIFEROL
  9. MIGOXIDE [Concomitant]
  10. SLOW MAG [Concomitant]
     Active Substance: MAGNESIUM CHLORIDE
  11. COMETRIQ [Suspect]
     Active Substance: CABOZANTINIB S-MALATE
     Dosage: 60 MG, QD
     Route: 048
     Dates: start: 20130814
  12. LISINOPRIL. [Concomitant]
     Active Substance: LISINOPRIL
  13. COMETRIQ [Suspect]
     Active Substance: CABOZANTINIB S-MALATE
     Dosage: 60 MG, QD
     Route: 048
     Dates: end: 20150818
  14. OMEPRAZOLE. [Concomitant]
     Active Substance: OMEPRAZOLE
  15. CARVEDILOL. [Concomitant]
     Active Substance: CARVEDILOL
  16. HYDROCODONE [Concomitant]
     Active Substance: HYDROCODONE
  17. SUTENT [Concomitant]
     Active Substance: SUNITINIB MALATE
  18. OXYCODONE [Concomitant]
     Active Substance: OXYCODONE
  19. COMETRIQ [Suspect]
     Active Substance: CABOZANTINIB S-MALATE
     Indication: THYROID CANCER
     Dosage: 100 MG, QD
     Dates: start: 20130321, end: 201303
  20. MAGNESIUM [Concomitant]
     Active Substance: MAGNESIUM
  21. BISOPROLOL HCT [Concomitant]

REACTIONS (9)
  - Skin cancer [Unknown]
  - Dehydration [Unknown]
  - Hypertension [Unknown]
  - Rib fracture [Recovered/Resolved]
  - Diarrhoea [Recovered/Resolved]
  - Asthenia [Recovering/Resolving]
  - Blood pressure fluctuation [Recovering/Resolving]
  - Fall [Unknown]
  - Cardiac flutter [Recovering/Resolving]

NARRATIVE: CASE EVENT DATE: 201305
